FAERS Safety Report 17185902 (Version 1)
Quarter: 2019Q4

REPORT INFORMATION
  Report Type: Spontaneous
  Country: US (occurrence: US)
  Receive Date: 20191220
  Receipt Date: 20191220
  Transmission Date: 20200122
  Serious: Yes (Disabling, Other)
  Sender: FDA-Public Use
  Company Number: US-SA-2019SA353285

PATIENT
  Age: 59 Year
  Sex: Female

DRUGS (9)
  1. SYNTHROID [Concomitant]
     Active Substance: LEVOTHYROXINE SODIUM
  2. CARAFATE [Concomitant]
     Active Substance: SUCRALFATE
  3. PEPCID [Concomitant]
     Active Substance: FAMOTIDINE
  4. LUNESTA [Concomitant]
     Active Substance: ESZOPICLONE
  5. LOSARTAN. [Concomitant]
     Active Substance: LOSARTAN
  6. DUPIXENT [Suspect]
     Active Substance: DUPILUMAB
     Indication: DERMATITIS ATOPIC
     Dosage: UNK
     Dates: start: 201902, end: 201911
  7. ROSUVASTATIN. [Concomitant]
     Active Substance: ROSUVASTATIN
  8. METFORMIN [Concomitant]
     Active Substance: METFORMIN HYDROCHLORIDE
  9. ALENDRONATE [Concomitant]
     Active Substance: ALENDRONATE SODIUM

REACTIONS (2)
  - Dystonia [Recovering/Resolving]
  - Foot deformity [Recovering/Resolving]

NARRATIVE: CASE EVENT DATE: 201908
